FAERS Safety Report 24988177 (Version 2)
Quarter: 2025Q1

REPORT INFORMATION
  Report Type: Spontaneous
  Country: US (occurrence: US)
  Receive Date: 20250220
  Receipt Date: 20250320
  Transmission Date: 20250409
  Serious: No
  Sender: AMGEN
  Company Number: US-AMGEN-USASP2025031372

PATIENT
  Age: 37 Year
  Sex: Female

DRUGS (2)
  1. OTEZLA [Suspect]
     Active Substance: APREMILAST
     Indication: Psoriatic arthropathy
     Dosage: 30 MILLIGRAM, BID
     Route: 048
     Dates: start: 20250121
  2. DIPHENHYDRAMINE HYDROCHLORIDE [Concomitant]
     Active Substance: DIPHENHYDRAMINE HYDROCHLORIDE
     Route: 065

REACTIONS (6)
  - Pain [Not Recovered/Not Resolved]
  - Loss of personal independence in daily activities [Not Recovered/Not Resolved]
  - Diarrhoea [Not Recovered/Not Resolved]
  - Rash [Not Recovered/Not Resolved]
  - Discomfort [Not Recovered/Not Resolved]
  - Skin irritation [Not Recovered/Not Resolved]

NARRATIVE: CASE EVENT DATE: 20250101
